FAERS Safety Report 21985186 (Version 1)
Quarter: 2023Q1

REPORT INFORMATION
  Report Type: Spontaneous
  Country: US (occurrence: None)
  Receive Date: 20230210
  Receipt Date: 20230210
  Transmission Date: 20230418
  Serious: Yes (Life-Threatening, Hospitalization)
  Sender: FDA-Public Use
  Company Number: None

PATIENT
  Age: 80 Year
  Sex: Male
  Weight: 34 kg

DRUGS (13)
  1. VANCOMYCIN [Suspect]
     Active Substance: VANCOMYCIN
     Indication: Debridement
     Route: 061
     Dates: start: 20230203, end: 20230203
  2. allopurinol 50 mg tablet [Concomitant]
  3. Vitamin C 500 mg tablet [Concomitant]
     Dates: start: 20230203
  4. Cefepime 2 g [Concomitant]
  5. Collegenase [Concomitant]
  6. Daptomycin 800 mg [Concomitant]
  7. Exonxaparin 30 mg [Concomitant]
  8. LINEZOLID [Concomitant]
     Active Substance: LINEZOLID
  9. melatonin 3 mg tablet [Concomitant]
  10. METRONIDAZOLE [Concomitant]
     Active Substance: METRONIDAZOLE
  11. piperacilline/tazobactam 4.5 g [Concomitant]
  12. TAMSULOSIN HYDROCHLORIDE [Concomitant]
     Active Substance: TAMSULOSIN HYDROCHLORIDE
  13. fentanyl 25 mg injection [Concomitant]

REACTIONS (16)
  - Extradural abscess [None]
  - Sepsis [None]
  - Immune thrombocytopenia [None]
  - Endocarditis [None]
  - International normalised ratio increased [None]
  - Vitamin K deficiency [None]
  - Anaemia [None]
  - Wound secretion [None]
  - Delirium [None]
  - Confusional state [None]
  - Azotaemia [None]
  - Acute kidney injury [None]
  - Meningitis [None]
  - Contraindicated product administered [None]
  - Leukocytosis [None]
  - Hepatocellular injury [None]

NARRATIVE: CASE EVENT DATE: 20230203
